FAERS Safety Report 4598001-6 (Version None)
Quarter: 2005Q1

REPORT INFORMATION
  Report Type: 
  Country: None (occurrence: None)
  Receive Date: 20050209
  Receipt Date: 20040625
  Transmission Date: 20050727
  Serious: Yes (Hospitalization)
  Sender: FDA-Public Use
  Company Number: 372439

PATIENT
  Age: 18 Year
  Sex: Male
  Weight: 68 kg

DRUGS (4)
  1. TORADOL [Suspect]
     Indication: POST PROCEDURAL PAIN
     Dosage: 20 MG 2 PER DAY ORAL
     Route: 048
     Dates: start: 20040609, end: 20040619
  2. ACETYL SALICYLIC ACID USP BAT [Suspect]
     Indication: PROPHYLAXIS
     Dosage: 325 MG 2 PER DAY ORAL
     Route: 048
     Dates: start: 20040609, end: 20040619
  3. KEFLEX [Concomitant]
  4. VICODIN [Concomitant]

REACTIONS (2)
  - GASTROINTESTINAL HAEMORRHAGE [None]
  - HAEMOGLOBIN DECREASED [None]
